FAERS Safety Report 5469655-7 (Version None)
Quarter: 2007Q3

REPORT INFORMATION
  Report Type: 
  Country: None (occurrence: None)
  Receive Date: 20070820
  Receipt Date: 20070430
  Transmission Date: 20080115
  Serious: No
  Sender: FDA-Public Use
  Company Number: WAES 0705USA00232

PATIENT
  Age: 55 Year
  Sex: Female

DRUGS (6)
  1. JANUVIA [Suspect]
     Indication: TYPE 2 DIABETES MELLITUS
     Dosage: 50 MG/DAILY/PO; 100 MG/DAILY/PO; /DAILY/PO; 100 MG/DAILY/PO
     Route: 048
     Dates: start: 20070101, end: 20070101
  2. JANUVIA [Suspect]
     Indication: TYPE 2 DIABETES MELLITUS
     Dosage: 50 MG/DAILY/PO; 100 MG/DAILY/PO; /DAILY/PO; 100 MG/DAILY/PO
     Route: 048
     Dates: start: 20070101, end: 20070101
  3. JANUVIA [Suspect]
     Indication: TYPE 2 DIABETES MELLITUS
     Dosage: 50 MG/DAILY/PO; 100 MG/DAILY/PO; /DAILY/PO; 100 MG/DAILY/PO
     Route: 048
     Dates: start: 20070101, end: 20070101
  4. JANUVIA [Suspect]
     Indication: TYPE 2 DIABETES MELLITUS
     Dosage: 50 MG/DAILY/PO; 100 MG/DAILY/PO; /DAILY/PO; 100 MG/DAILY/PO
     Route: 048
     Dates: start: 20070220, end: 20070101
  5. PLAVIX [Concomitant]
  6. ASPIRIN [Concomitant]

REACTIONS (3)
  - DIZZINESS [None]
  - INAPPROPRIATE SCHEDULE OF DRUG ADMINISTRATION [None]
  - NAUSEA [None]
